FAERS Safety Report 13378059 (Version 2)
Quarter: 2018Q1

REPORT INFORMATION
  Report Type: Spontaneous
  Country: CA (occurrence: CA)
  Receive Date: 20170328
  Receipt Date: 20180201
  Transmission Date: 20180508
  Serious: Yes (Other)
  Sender: FDA-Public Use
  Company Number: CA-SA-2017SA043483

PATIENT
  Age: 31 Year
  Sex: Female

DRUGS (7)
  1. FOLATE [Concomitant]
     Active Substance: FOLATE SODIUM
     Dosage: FREQUENCY: 1 EVERY 2 DAYS
     Route: 065
  2. CHLOROQUINE. [Suspect]
     Active Substance: CHLOROQUINE
     Dosage: THERAPY DURATION REPORTED AS: 0.0
     Route: 065
     Dates: start: 1991, end: 1991
  3. METHOTREXATE. [Suspect]
     Active Substance: METHOTREXATE
     Route: 065
     Dates: start: 1993
  4. AMITRIPTYLINE [Concomitant]
     Active Substance: AMITRIPTYLINE
     Route: 065
  5. LEFLUNOMIDE. [Suspect]
     Active Substance: LEFLUNOMIDE
     Dosage: THERAPY DURATION: 6 MONTH
     Route: 048
     Dates: start: 201403, end: 201408
  6. VIMOVO [Concomitant]
     Active Substance: ESOMEPRAZOLE MAGNESIUM\NAPROXEN
     Dosage: 500/20 MG
     Route: 065
     Dates: start: 20151119
  7. PARIET [Concomitant]
     Active Substance: RABEPRAZOLE SODIUM
     Route: 065

REACTIONS (3)
  - Joint swelling [Unknown]
  - Crying [Recovered/Resolved]
  - Drug ineffective [Unknown]

NARRATIVE: CASE EVENT DATE: 1992
